FAERS Safety Report 7825705-1 (Version None)
Quarter: 2011Q4

REPORT INFORMATION
  Report Type: 
  Country: None (occurrence: None)
  Receive Date: 20111019
  Receipt Date: 20111006
  Transmission Date: 20120403
  Serious: Yes (Hospitalization, Disabling)
  Sender: FDA-Public Use
  Company Number: CH-US-EMD SERONO, INC.-7070066

PATIENT
  Sex: Female
  Weight: 84 kg

DRUGS (8)
  1. ACETYLCYSTEINE [Concomitant]
     Route: 048
  2. ATORVASTATIN CALCIUM [Concomitant]
     Route: 048
  3. REBIF [Suspect]
     Indication: RELAPSING-REMITTING MULTIPLE SCLEROSIS
     Route: 058
     Dates: start: 20080701
  4. COVERSUM COMBI 5 [Concomitant]
     Route: 048
  5. CARDIOAX ASS [Concomitant]
  6. BILOL [Concomitant]
     Indication: HYPERTENSION
     Route: 048
  7. GLYTACID MEPHA [Concomitant]
     Indication: DIABETES MELLITUS
     Route: 048
  8. JANUVIA [Concomitant]
     Route: 048

REACTIONS (2)
  - MALIGNANT MELANOMA [None]
  - ISCHAEMIC STROKE [None]
